FAERS Safety Report 11867287 (Version 2)
Quarter: 2016Q1

REPORT INFORMATION
  Report Type: Spontaneous
  Country: None (occurrence: US)
  Receive Date: 20151224
  Receipt Date: 20160129
  Transmission Date: 20160526
  Serious: No
  Sender: FDA-Public Use
  Company Number: US-MEDAC PHARMA, INC.-1045858

PATIENT
  Age: 68 Year
  Sex: Female
  Weight: 54.09 kg

DRUGS (4)
  1. FORTEO [Suspect]
     Active Substance: TERIPARATIDE
     Dates: start: 20151110
  2. PREDNISONE. [Concomitant]
     Active Substance: PREDNISONE
  3. ENBREL [Concomitant]
     Active Substance: ETANERCEPT
  4. RASUVO [Suspect]
     Active Substance: METHOTREXATE SODIUM
     Indication: RHEUMATOID ARTHRITIS
     Dates: end: 201511

REACTIONS (11)
  - Bone pain [Unknown]
  - Eye pain [Unknown]
  - Gait disturbance [Recovered/Resolved]
  - Gastrooesophageal reflux disease [Recovering/Resolving]
  - Groin pain [Unknown]
  - Joint stiffness [Unknown]
  - Tinnitus [None]
  - Abdominal discomfort [Unknown]
  - Chest pain [Recovered/Resolved]
  - Feeling abnormal [Recovered/Resolved]
  - Swelling [Recovering/Resolving]

NARRATIVE: CASE EVENT DATE: 2015
